FAERS Safety Report 6360642-3 (Version None)
Quarter: 2009Q3

REPORT INFORMATION
  Report Type: 
  Country: None (occurrence: None)
  Receive Date: 20090915
  Receipt Date: 20090831
  Transmission Date: 20100115
  Serious: Yes (Life-Threatening, Hospitalization)
  Sender: FDA-Public Use
  Company Number: 2009PL000268

PATIENT
  Age: 60 Year
  Sex: Female

DRUGS (2)
  1. TRANDATE [Suspect]
     Indication: HYPERTENSION
     Dosage: 200 MG; BID; PO
     Route: 048
     Dates: start: 20090506, end: 20090703
  2. RENAGEL [Suspect]
     Indication: HYPERPHOSPHATAEMIA
     Dosage: 9.6 G; QD; PO
     Route: 048
     Dates: start: 20090327

REACTIONS (6)
  - BRADYCARDIA [None]
  - CONCOMITANT DISEASE PROGRESSION [None]
  - HYPERKALAEMIA [None]
  - HYPERTENSION [None]
  - MENTAL STATUS CHANGES [None]
  - NODAL ARRHYTHMIA [None]
